FAERS Safety Report 7986472-4 (Version None)
Quarter: 2011Q4

REPORT INFORMATION
  Report Type: 
  Country: None (occurrence: None)
  Receive Date: 20111216
  Receipt Date: 20110128
  Transmission Date: 20120403
  Serious: No
  Sender: FDA-Public Use
  Company Number: US-BRISTOL-MYERS SQUIBB COMPANY-15517030

PATIENT
  Sex: Female

DRUGS (1)
  1. ABILIFY [Suspect]
     Dosage: 1DF=2 AND 1/2 OR 5MG. START COUPLE OF WEEKS AGO.

REACTIONS (1)
  - SINUS TACHYCARDIA [None]
